FAERS Safety Report 10471372 (Version 3)
Quarter: 2014Q4

REPORT INFORMATION
  Report Type: Spontaneous
  Country: CH (occurrence: CH)
  Receive Date: 20140923
  Receipt Date: 20141008
  Transmission Date: 20150528
  Serious: Yes (Other)
  Sender: FDA-Public Use
  Company Number: CH-ENDO PHARMACEUTICALS INC.-FORT20140189

PATIENT
  Age: 58 Year
  Sex: Male

DRUGS (1)
  1. FORTESTA [Suspect]
     Active Substance: TESTOSTERONE
     Indication: HYPOGONADISM
     Route: 061
     Dates: start: 20140615

REACTIONS (1)
  - Testicular atrophy [Recovering/Resolving]

NARRATIVE: CASE EVENT DATE: 20140820
